FAERS Safety Report 7901028-7 (Version None)
Quarter: 2011Q4

REPORT INFORMATION
  Report Type: 
  Country: None (occurrence: None)
  Receive Date: 20111108
  Receipt Date: 20111102
  Transmission Date: 20120403
  Serious: Yes (Death, Hospitalization)
  Sender: FDA-Public Use
  Company Number: FR-PFIZER INC-2011267819

PATIENT
  Age: 67 Year
  Sex: Female

DRUGS (5)
  1. HYDROCORTISONE [Concomitant]
     Indication: CROHN'S DISEASE
     Dosage: 15 MG, 1X/DAY
     Route: 048
     Dates: end: 20111001
  2. SUTENT [Suspect]
     Dosage: 50 MG, 1X/DAY, 4 WEEKS FOLLOWED WITH A TREATMENT INTERRUPTION FOR 2 WEEKS
     Route: 048
     Dates: start: 20110912, end: 20111001
  3. SUTENT [Suspect]
     Indication: METASTATIC RENAL CELL CARCINOMA
     Dosage: 50 MG, 1X/DAY, 4 WEEKS FOLLOWED WITH A TREATMENT INTERRUPTION FOR 2 WEEKS
     Route: 048
     Dates: start: 20110601
  4. ALENDRONATE SODIUM [Concomitant]
     Indication: OSTEOPOROSIS
     Dosage: UNK
     Route: 048
  5. NEXIUM [Suspect]
     Indication: GASTROOESOPHAGEAL REFLUX DISEASE
     Dosage: 20 MG, 1X/DAY
     Route: 048
     Dates: start: 20110601, end: 20111001

REACTIONS (2)
  - HEMIPLEGIA [None]
  - CEREBRAL HAEMATOMA [None]
